FAERS Safety Report 23872000 (Version 2)
Quarter: 2024Q3

REPORT INFORMATION
  Report Type: Spontaneous
  Country: JP (occurrence: JP)
  Receive Date: 20240520
  Receipt Date: 20240704
  Transmission Date: 20241016
  Serious: Yes (Hospitalization, Other)
  Sender: AMGEN
  Company Number: JP-KISSEI-TV20240373_P_1

PATIENT
  Age: 84 Year
  Sex: Female
  Weight: 42.6 kg

DRUGS (4)
  1. TAVNEOS [Suspect]
     Active Substance: AVACOPAN
     Indication: Microscopic polyangiitis
     Dosage: 60 MG/DAY
     Route: 048
     Dates: start: 20230803, end: 20231002
  2. PREDONINE [Concomitant]
     Active Substance: PREDNISOLONE
     Indication: Microscopic polyangiitis
     Dosage: UNK
     Dates: start: 20230519
  3. RITUXIMAB [Concomitant]
     Active Substance: RITUXIMAB
     Indication: Microscopic polyangiitis
     Dosage: UNK 1, QWK
     Route: 042
     Dates: start: 20230523
  4. SULFAMETHOXAZOLE\TRIMETHOPRIM [Concomitant]
     Active Substance: SULFAMETHOXAZOLE\TRIMETHOPRIM
     Indication: Antifungal prophylaxis
     Dosage: 0.5 GRAM, QD (PERORAL MEDICINE)
     Route: 048
     Dates: start: 20230523

REACTIONS (4)
  - Suspected drug-induced liver injury [Unknown]
  - Jaundice [Recovering/Resolving]
  - Malaise [Recovering/Resolving]
  - Decreased appetite [Recovering/Resolving]

NARRATIVE: CASE EVENT DATE: 20230101
